FAERS Safety Report 22001445 (Version 1)
Quarter: 2023Q1

REPORT INFORMATION
  Report Type: Spontaneous
  Country: BE (occurrence: BE)
  Receive Date: 20230216
  Receipt Date: 20230216
  Transmission Date: 20230417
  Serious: Yes (Other)
  Sender: FDA-Public Use
  Company Number: BE-CELLTRION HEALTHCARE HUNGARY KFT-2023BE001907

PATIENT

DRUGS (8)
  1. METHOTREXATE [Suspect]
     Active Substance: METHOTREXATE
     Indication: Crohn^s disease
     Dosage: IMMUNOSUPPRESSANT THERAPY DOSES WERE STABLE
     Route: 065
  2. AZATHIOPRINE [Suspect]
     Active Substance: AZATHIOPRINE
     Indication: Crohn^s disease
     Dosage: IMMUNOSUPPRESSANT THERAPY DOSES WERE STABLE
     Route: 065
  3. INFLIXIMAB [Suspect]
     Active Substance: INFLIXIMAB
     Indication: Crohn^s disease
     Dosage: 5MG/KG IF NO REMISSION AT 4 WEEKS, REINFUSION
     Route: 065
  4. INFLIXIMAB [Suspect]
     Active Substance: INFLIXIMAB
     Dosage: 10 MILLIGRAM/KILOGRAM EVERY 8 WEEKS
     Route: 065
  5. INFLIXIMAB [Suspect]
     Active Substance: INFLIXIMAB
     Dosage: 5 MILLIGRAM/KILOGRAM5 MG/KG EVERY 8 WEEKS FOR THE PAST }/ 4 MONTHS
     Route: 065
  6. INFLIXIMAB [Suspect]
     Active Substance: INFLIXIMAB
     Dosage: 5 MG/KG IF REMISSION REACHED 4 WEEKS AFTER FIRST
     Route: 065
  7. INFLIXIMAB [Suspect]
     Active Substance: INFLIXIMAB
     Dosage: 10 MG/KG IF NO REMISSION AT 4 WEEKS, REINFUSION
     Route: 065
  8. MERCAPTOPURINE [Suspect]
     Active Substance: MERCAPTOPURINE
     Indication: Crohn^s disease
     Dosage: IMMUNOSUPPRESSANT THERAPY DOSES WERE STABLE
     Route: 065

REACTIONS (12)
  - Crohn^s disease [Unknown]
  - Appendicitis [Unknown]
  - Gastric operation [Unknown]
  - Ischaemic stroke [Unknown]
  - Neuralgia [Unknown]
  - Viral pericarditis [Unknown]
  - Pneumonia [Unknown]
  - Renal failure [Unknown]
  - Treatment failure [Unknown]
  - Infusion related reaction [Unknown]
  - Off label use [Unknown]
  - Loss of therapeutic response [Unknown]
